FAERS Safety Report 11549819 (Version 2)
Quarter: 2016Q1

REPORT INFORMATION
  Report Type: Spontaneous
  Country: US (occurrence: US)
  Receive Date: 20150924
  Receipt Date: 20160120
  Transmission Date: 20160525
  Serious: No
  Sender: FDA-Public Use
  Company Number: US-INCYTE CORPORATION-2015IN003592

PATIENT
  Age: 79 Year
  Sex: Female

DRUGS (18)
  1. JAKAFI [Suspect]
     Active Substance: RUXOLITINIB
     Indication: MYELOFIBROSIS
     Dosage: 20 MG, BID
     Route: 048
     Dates: start: 201506, end: 2015
  2. VITAMIN B COMPLEX [Concomitant]
     Active Substance: CYANOCOBALAMIN\DEXPANTHENOL\NIACINAMIDE\PYRIDOXINE HYDROCHLORIDE\RIBOFLAVIN 5^-PHOSPHATE SODIUM\THIAMINE HYDROCHLORIDE\VITAMIN B COMPLEX
     Dosage: ONE TWICE DAILY
  3. DHA [Concomitant]
     Active Substance: DIETARY SUPPLEMENT
  4. AMLODIPINE [Concomitant]
     Active Substance: AMLODIPINE BESYLATE
     Dosage: 5 MG, QD
     Route: 048
  5. EPA [Concomitant]
  6. MELATONIN [Concomitant]
     Active Substance: MELATONIN
     Dosage: 10 MG AT BEDTIME
     Route: 048
  7. ASPIRIN. [Concomitant]
     Active Substance: ASPIRIN
     Dosage: 325 MG PRN
     Route: 048
  8. IODINE [Concomitant]
     Active Substance: IODINE
     Dosage: AS  PRESCRIBED BY AN OUTSIDE PROVIDER
  9. PROBIOTICS [Concomitant]
     Active Substance: PROBIOTICS NOS
     Dosage: 1 DAILY
     Route: 048
  10. JAKAFI [Suspect]
     Active Substance: RUXOLITINIB
     Dosage: 10 MG, BID
     Route: 048
     Dates: start: 2015, end: 2015
  11. JAKAFI [Suspect]
     Active Substance: RUXOLITINIB
     Dosage: 15 MG, BID
     Route: 048
     Dates: start: 20150717
  12. CALCIUM CITRATE [Concomitant]
     Active Substance: CALCIUM CITRATE
  13. CHOLECALCIFEROL [Concomitant]
     Active Substance: CHOLECALCIFEROL
  14. FISH OIL [Concomitant]
     Active Substance: FISH OIL
  15. BONE HEALTH [Concomitant]
     Dosage: 2 TABS DAILY
  16. VITAMIN B12 [Concomitant]
     Active Substance: CYANOCOBALAMIN
  17. DIGESTIVE ENZYMES [Concomitant]
     Active Substance: UNSPECIFIED INGREDIENT
  18. MULTIVITAMIN                       /00097801/ [Concomitant]
     Active Substance: VITAMINS
     Indication: PRODUCT USED FOR UNKNOWN INDICATION

REACTIONS (11)
  - Platelet count increased [Unknown]
  - Headache [Unknown]
  - Haemoglobin decreased [Unknown]
  - Disturbance in attention [Unknown]
  - Disorientation [Unknown]
  - Feeling cold [Unknown]
  - Abdominal pain [Unknown]
  - Blood pressure increased [Unknown]
  - Fatigue [Unknown]
  - Dizziness [Unknown]
  - Weight increased [Unknown]

NARRATIVE: CASE EVENT DATE: 20150610
